FAERS Safety Report 6118417-6 (Version None)
Quarter: 2009Q1

REPORT INFORMATION
  Report Type: 
  Country: None (occurrence: None)
  Receive Date: 20090314
  Receipt Date: 20090218
  Transmission Date: 20090719
  Serious: No
  Sender: FDA-Public Use
  Company Number: US-ABBOTT-09P-163-0558195-00

PATIENT
  Sex: Female
  Weight: 74.002 kg

DRUGS (3)
  1. HUMIRA [Suspect]
     Indication: PSORIASIS
     Dates: start: 20090216, end: 20090216
  2. HUMIRA [Suspect]
     Dates: start: 20090216
  3. METHOTREXATE [Concomitant]
     Indication: PSORIASIS
     Dosage: 2.5 MILLIGRAMS 5 IN 1 WEEK (12.5 MILLIGRAMS)

REACTIONS (1)
  - INCORRECT DOSE ADMINISTERED [None]
